FAERS Safety Report 9449724 (Version 1)
Quarter: 2013Q3

REPORT INFORMATION
  Report Type: Spontaneous
  Country: BR (occurrence: BR)
  Receive Date: 20130809
  Receipt Date: 20130809
  Transmission Date: 20140515
  Serious: Yes (Death, Other)
  Sender: FDA-Public Use
  Company Number: BR-JNJFOC-20130719061

PATIENT
  Age: 53 Year
  Sex: Male

DRUGS (1)
  1. ZYTIGA [Suspect]
     Indication: PROSTATE CANCER
     Route: 048

REACTIONS (4)
  - Death [Fatal]
  - Liver disorder [Unknown]
  - Swelling [Unknown]
  - Prostate cancer [Unknown]
